FAERS Safety Report 21495493 (Version 1)
Quarter: 2022Q4

REPORT INFORMATION
  Report Type: Report from Study
  Country: US (occurrence: US)
  Receive Date: 20221022
  Receipt Date: 20221022
  Transmission Date: 20230113
  Serious: Yes (Other)
  Sender: FDA-Public Use
  Company Number: US-ABBVIE-22K-163-4380716-00

PATIENT
  Age: 82 Year
  Sex: Male
  Weight: 88.45 kg

DRUGS (9)
  1. HUMIRA [Suspect]
     Active Substance: ADALIMUMAB
     Indication: Colitis ulcerative
     Dosage: CITRATE FREE?FORM STRENGTH: 40 MG
     Route: 058
     Dates: start: 20201106
  2. HUMIRA [Suspect]
     Active Substance: ADALIMUMAB
     Dosage: CITRATE FREE?FORM STRENGTH: 40 MG
     Route: 058
  3. HUMIRA [Suspect]
     Active Substance: ADALIMUMAB
     Dosage: CITRATE FREE?FORM STRENGTH: 40 MG
     Route: 058
     Dates: start: 202201
  4. VITAMIN B12 [Concomitant]
     Active Substance: CYANOCOBALAMIN
     Indication: Product used for unknown indication
     Dosage: DAILY
     Dates: start: 2020
  5. DUPIXENT [Concomitant]
     Active Substance: DUPILUMAB
     Indication: Product used for unknown indication
     Dosage: 300MG-2ML
     Dates: start: 202111
  6. PFIZER-BIONTECH COVID-19 VACCINE [Concomitant]
     Active Substance: TOZINAMERAN
     Indication: COVID-19 immunisation
     Dosage: TIME INTERVAL: 1 TOTAL
     Route: 030
  7. PFIZER-BIONTECH COVID-19 VACCINE [Concomitant]
     Active Substance: TOZINAMERAN
     Indication: COVID-19 immunisation
     Dosage: TIME INTERVAL: 1 TOTAL: BOOSTER DOSE
     Route: 030
  8. ROPINIROLE [Concomitant]
     Active Substance: ROPINIROLE
     Indication: Product used for unknown indication
     Dosage: PILLS, DAILY
     Dates: start: 201910
  9. IRON [Concomitant]
     Active Substance: IRON
     Indication: Product used for unknown indication
     Dosage: DAILY

REACTIONS (2)
  - Malignant melanoma [Unknown]
  - Tooth extraction [Recovering/Resolving]

NARRATIVE: CASE EVENT DATE: 20220401
